FAERS Safety Report 10241266 (Version 1)
Quarter: 2014Q1

REPORT INFORMATION
  Report Type: Spontaneous
  Country: US (occurrence: None)
  Receive Date: 20140306
  Receipt Date: 20140306
  Transmission Date: 20141002
  Serious: Yes (Hospitalization)
  Sender: FDA-Public Use
  Company Number: 163-21880-13051459

PATIENT
  Age: 82 Year
  Sex: Female

DRUGS (4)
  1. REVLIMID (LENALIDOMIDE) (25 MILLIGRAM, CAPSULES) [Suspect]
     Indication: PLASMA CELL MYELOMA
     Dosage: 25MG, 1 IN 1D, PO
     Route: 048
     Dates: start: 200905
  2. CENTRUM (CENTRUM) (CHEWALE TABLET) [Concomitant]
  3. ASPIRIN (ACETYLSALICYLIC ACID) [Concomitant]
  4. LOPERAMIDE (LOPERAMIDE) [Concomitant]

REACTIONS (4)
  - Pneumonia [None]
  - Bronchitis [None]
  - Pyrexia [None]
  - Nasopharyngitis [None]
